FAERS Safety Report 8500798-7 (Version None)
Quarter: 2012Q3

REPORT INFORMATION
  Report Type: 
  Country: None (occurrence: None)
  Receive Date: 20120703
  Receipt Date: 20120703
  Transmission Date: 20120928
  Serious: No
  Sender: FDA-Public Use
  Company Number: None

PATIENT
  Age: 68 Year
  Sex: Male
  Weight: 69.1 kg

DRUGS (1)
  1. NITROFURANTOIN [Suspect]
     Indication: URINARY TRACT INFECTION
     Dosage: 100 MG EVERY DAY PO
     Route: 048
     Dates: start: 19910426, end: 20111231

REACTIONS (2)
  - LUNG INFILTRATION [None]
  - PLEURAL EFFUSION [None]
